FAERS Safety Report 5822260-2 (Version None)
Quarter: 2008Q3

REPORT INFORMATION
  Report Type: 
  Country: None (occurrence: None)
  Receive Date: 20080725
  Receipt Date: 20080714
  Transmission Date: 20090109
  Serious: Yes (Hospitalization)
  Sender: FDA-Public Use
  Company Number: FR-ELI_LILLY_AND_COMPANY-FR200807003113

PATIENT
  Age: 24 Year
  Sex: Female

DRUGS (2)
  1. ZYPREXA [Suspect]
     Dosage: 10 MG, DAILY (1/D)
     Route: 048
  2. AMITRIPTYLINE HYDROCHLORIDE [Concomitant]
     Dosage: 50 MG, DAILY (1/D)

REACTIONS (1)
  - HEPATOCELLULAR INJURY [None]
